FAERS Safety Report 7350877-5 (Version None)
Quarter: 2011Q1

REPORT INFORMATION
  Report Type: 
  Country: None (occurrence: None)
  Receive Date: 20110314
  Receipt Date: 20110310
  Transmission Date: 20110831
  Serious: Yes (Other)
  Sender: FDA-Public Use
  Company Number: US-PFIZER INC-2011053314

PATIENT
  Sex: Female

DRUGS (1)
  1. PRISTIQ [Suspect]
     Dosage: 50 MG, UNKNOWN FREQUENCY

REACTIONS (5)
  - NAUSEA [None]
  - PRESYNCOPE [None]
  - DIZZINESS [None]
  - PALPITATIONS [None]
  - HEADACHE [None]
